FAERS Safety Report 24248706 (Version 3)
Quarter: 2024Q4

REPORT INFORMATION
  Report Type: Spontaneous
  Country: JP (occurrence: JP)
  Receive Date: 20240826
  Receipt Date: 20241009
  Transmission Date: 20250114
  Serious: Yes (Other)
  Sender: BRACCO
  Company Number: JP-BAYER-2024A119879

PATIENT
  Age: 6 Decade
  Sex: Male

DRUGS (2)
  1. IOPAMIDOL [Suspect]
     Active Substance: IOPAMIDOL
     Indication: Angiocardiogram
     Dosage: UNK, ONCE
  2. ARGATROBAN [Concomitant]
     Active Substance: ARGATROBAN
     Indication: Angiocardiogram

REACTIONS (1)
  - Platelet count decreased [Unknown]
